FAERS Safety Report 5621290-3 (Version None)
Quarter: 2008Q1

REPORT INFORMATION
  Report Type: 
  Country: None (occurrence: None)
  Receive Date: 20080211
  Receipt Date: 20080129
  Transmission Date: 20080703
  Serious: Yes (Other)
  Sender: FDA-Public Use
  Company Number: DE-JNJFOC-20080106740

PATIENT
  Sex: Male
  Weight: 64 kg

DRUGS (8)
  1. INVEGA [Suspect]
     Indication: ACUTE PSYCHOSIS
     Route: 048
  2. CIPRAMIL [Concomitant]
     Indication: DEPRESSION
     Route: 048
  3. CARBIDOPA + LEVODOPA [Concomitant]
     Indication: PARKINSON'S DISEASE
     Route: 048
  4. METFORMIN HCL [Concomitant]
     Indication: DIABETES MELLITUS
     Route: 065
  5. OBSIDAN [Concomitant]
     Route: 065
  6. EXELON [Concomitant]
     Route: 065
  7. XIMOVAN [Concomitant]
     Route: 048
  8. LISINOPRIL [Concomitant]
     Route: 048

REACTIONS (2)
  - ERYTHEMA [None]
  - FACE OEDEMA [None]
